FAERS Safety Report 18545156 (Version 1)
Quarter: 2020Q4

REPORT INFORMATION
  Report Type: Spontaneous
  Country: US (occurrence: US)
  Receive Date: 20201125
  Receipt Date: 20201125
  Transmission Date: 20210114
  Serious: No
  Sender: FDA-Public Use
  Company Number: None

PATIENT
  Age: 37 Year
  Sex: Female
  Weight: 51.3 kg

DRUGS (7)
  1. DAILY WOMENS MULTIVITAMIN [Concomitant]
  2. BIOTIN [Concomitant]
     Active Substance: BIOTIN
  3. ETONOGESTREL/ETHINYL ESTRADIOL [Suspect]
     Active Substance: ETHINYL ESTRADIOL\ETONOGESTREL
     Indication: MENSTRUATION IRREGULAR
     Dosage: ?          QUANTITY:1 VAGINAL RING;
     Route: 067
  4. ETONOGESTREL/ETHINYL ESTRADIOL [Suspect]
     Active Substance: ETHINYL ESTRADIOL\ETONOGESTREL
     Indication: CONTRACEPTION
     Dosage: ?          QUANTITY:1 VAGINAL RING;
     Route: 067
  5. FISH OIL [Concomitant]
     Active Substance: FISH OIL
  6. ETONOGESTREL/ETHINYL ESTRADIOL [Suspect]
     Active Substance: ETHINYL ESTRADIOL\ETONOGESTREL
     Indication: DYSMENORRHOEA
     Dosage: ?          QUANTITY:1 VAGINAL RING;
     Route: 067
  7. TURMERIC [Concomitant]
     Active Substance: HERBALS\TURMERIC

REACTIONS (9)
  - Mood swings [None]
  - Anxiety [None]
  - Menorrhagia [None]
  - Muscle spasms [None]
  - Fatigue [None]
  - Insomnia [None]
  - Metrorrhagia [None]
  - Product substitution issue [None]
  - Depression [None]

NARRATIVE: CASE EVENT DATE: 20200830
